FAERS Safety Report 25007809 (Version 9)
Quarter: 2025Q4

REPORT INFORMATION
  Report Type: Spontaneous
  Country: US (occurrence: US)
  Receive Date: 20250225
  Receipt Date: 20251226
  Transmission Date: 20260117
  Serious: No
  Sender: BRISTOL-MYERS SQUIBB COMPANY
  Company Number: US-BRISTOL-MYERS SQUIBB COMPANY-2025-027807

PATIENT
  Age: 44 Year
  Sex: Male

DRUGS (1)
  1. REVLIMID [Suspect]
     Active Substance: LENALIDOMIDE
     Indication: Plasmacytoma
     Route: 048

REACTIONS (13)
  - Insomnia [Unknown]
  - Off label use [Unknown]
  - Rash [Recovered/Resolved]
  - Product dose omission issue [Unknown]
  - Constipation [Unknown]
  - Pain [Unknown]
  - Fatigue [Unknown]
  - Inappropriate schedule of product administration [Unknown]
  - Nasopharyngitis [Unknown]
  - Cough [Unknown]
  - Feeling hot [Unknown]
  - Paraesthesia [Unknown]
  - Burning sensation [Unknown]
